FAERS Safety Report 10052558 (Version 2)
Quarter: 2014Q2

REPORT INFORMATION
  Report Type: Spontaneous
  Country: GB (occurrence: GB)
  Receive Date: 20140402
  Receipt Date: 20140402
  Transmission Date: 20141212
  Serious: Yes (Other)
  Sender: FDA-Public Use
  Company Number: GB-SA-2014SA033870

PATIENT
  Age: 50 Year
  Sex: Male
  Weight: 76 kg

DRUGS (8)
  1. AFLIBERCEPT [Suspect]
     Indication: GASTROINTESTINAL CARCINOMA
     Route: 042
     Dates: start: 20140207, end: 20140207
  2. AFLIBERCEPT [Suspect]
     Indication: GASTROINTESTINAL CARCINOMA
     Route: 042
  3. FOLINIC ACID [Concomitant]
     Indication: PRODUCT USED FOR UNKNOWN INDICATION
     Route: 042
     Dates: start: 20140207, end: 20140207
  4. FOLINIC ACID [Concomitant]
     Indication: PRODUCT USED FOR UNKNOWN INDICATION
     Route: 042
  5. 5-FU [Concomitant]
     Indication: PRODUCT USED FOR UNKNOWN INDICATION
     Dosage: DOSAGE:750 MG FOLLOWED BY 4500 MG AS 46 HOURS INFUSION
     Route: 042
     Dates: start: 20140207, end: 20140207
  6. 5-FU [Concomitant]
     Indication: PRODUCT USED FOR UNKNOWN INDICATION
     Dosage: DOSAGE:750 MG FOLLOWED BY 4500 MG AS 46 HOURS INFUSION
     Route: 042
  7. IRINOTECAN [Concomitant]
     Indication: PRODUCT USED FOR UNKNOWN INDICATION
     Route: 042
     Dates: start: 20140207, end: 20140207
  8. IRINOTECAN [Concomitant]
     Indication: PRODUCT USED FOR UNKNOWN INDICATION
     Route: 042

REACTIONS (4)
  - Tumour marker increased [Unknown]
  - Carbohydrate antigen 19-9 increased [Unknown]
  - Carcinoembryonic antigen increased [Unknown]
  - Diarrhoea [Unknown]
